FAERS Safety Report 23398665 (Version 2)
Quarter: 2024Q1

REPORT INFORMATION
  Report Type: Spontaneous
  Country: ES (occurrence: ES)
  Receive Date: 20240112
  Receipt Date: 20240123
  Transmission Date: 20240410
  Serious: Yes (Death, Hospitalization, Other)
  Sender: FDA-Public Use
  Company Number: ES-KYOWAKIRIN-2024KK000381

PATIENT

DRUGS (5)
  1. POTELIGEO [Suspect]
     Active Substance: MOGAMULIZUMAB-KPKC
     Indication: Cutaneous T-cell lymphoma
     Dosage: UNK ( ESPECIALLY THE FOURTH AND LAST ONE OF MOGAMULIZUMAB)
     Route: 042
     Dates: start: 202308
  2. POTELIGEO [Suspect]
     Active Substance: MOGAMULIZUMAB-KPKC
     Dosage: UNK
     Route: 042
     Dates: start: 20230814
  3. POTELIGEO [Suspect]
     Active Substance: MOGAMULIZUMAB-KPKC
     Dosage: UNK
     Route: 042
     Dates: start: 20230911
  4. POTELIGEO [Suspect]
     Active Substance: MOGAMULIZUMAB-KPKC
     Dosage: UNK
     Route: 042
     Dates: start: 20230925
  5. POTELIGEO [Suspect]
     Active Substance: MOGAMULIZUMAB-KPKC
     Dosage: UNK
     Route: 042
     Dates: start: 20231008

REACTIONS (12)
  - Disease progression [Fatal]
  - General physical health deterioration [Unknown]
  - Depressed level of consciousness [Unknown]
  - Ectropion [Unknown]
  - Unresponsive to stimuli [Unknown]
  - Pseudomonal skin infection [Recovering/Resolving]
  - Pancytopenia [Unknown]
  - Dermatitis exfoliative generalised [Recovered/Resolved]
  - Staphylococcal skin infection [Recovering/Resolving]
  - Pyrexia [Unknown]
  - Somnolence [Unknown]
  - Platelet count decreased [Unknown]

NARRATIVE: CASE EVENT DATE: 20230822
